FAERS Safety Report 5206265-0 (Version None)
Quarter: 2007Q1

REPORT INFORMATION
  Report Type: 
  Country: None (occurrence: None)
  Receive Date: 20070109
  Receipt Date: 20061227
  Transmission Date: 20070707
  Serious: Yes (Hospitalization)
  Sender: FDA-Public Use
  Company Number: 2005BI015687

PATIENT
  Age: 60 Year
  Sex: Female

DRUGS (16)
  1. AVONEX [Suspect]
     Indication: MULTIPLE SCLEROSIS
     Dosage: 30 UG; QW; IM
     Route: 030
     Dates: start: 19960819
  2. BACLOFEN [Concomitant]
  3. ATENOLOL [Concomitant]
  4. LASIX [Concomitant]
  5. MULTI-VITAMIN [Concomitant]
  6. NEURONTIN [Concomitant]
  7. ASCORBIC ACID [Concomitant]
  8. VITAMIN B COMPLEX CAP [Concomitant]
  9. VITAMIN E [Concomitant]
  10. DETROL [Concomitant]
  11. FLOMAX [Concomitant]
  12. MULTIPLE VITAMIN [Concomitant]
  13. CALCIUM [Concomitant]
  14. VITAMIN D [Concomitant]
  15. FLU VACCINE [Concomitant]
  16. PNEUMONIA VACCINE [Concomitant]

REACTIONS (18)
  - ATROPHY [None]
  - CONSTIPATION [None]
  - DECUBITUS ULCER [None]
  - FATIGUE [None]
  - GAIT DISTURBANCE [None]
  - GENERAL PHYSICAL HEALTH DETERIORATION [None]
  - HYPOTHERMIA [None]
  - MOVEMENT DISORDER [None]
  - MULTIPLE SCLEROSIS RELAPSE [None]
  - MUSCLE SPASMS [None]
  - MUSCULOSKELETAL STIFFNESS [None]
  - PNEUMONIA [None]
  - RESPIRATORY DISTRESS [None]
  - SECONDARY PROGRESSIVE MULTIPLE SCLEROSIS [None]
  - SPINAL OSTEOARTHRITIS [None]
  - SPUTUM CULTURE POSITIVE [None]
  - STAPHYLOCOCCAL INFECTION [None]
  - URINARY TRACT INFECTION [None]
